FAERS Safety Report 19461150 (Version 2)
Quarter: 2021Q2

REPORT INFORMATION
  Report Type: Report from Study
  Country: US (occurrence: US)
  Receive Date: 20210625
  Receipt Date: 20210625
  Transmission Date: 20210717
  Serious: Yes (Hospitalization)
  Sender: FDA-Public Use
  Company Number: US-ENDO PHARMACEUTICALS INC-2021-009865

PATIENT
  Age: 17 Year
  Sex: Male
  Weight: 61.1 kg

DRUGS (11)
  1. VINCRISTINE [Suspect]
     Active Substance: VINCRISTINE
     Dosage: 2 MG MC2D1, UNKNOWN
     Route: 042
     Dates: start: 20201109
  2. METHOTREXATE SODIUM. [Suspect]
     Active Substance: METHOTREXATE SODIUM
     Dosage: 17.5 MG MC2D8, 15, 22, UNKNOWN
     Route: 048
     Dates: start: 20201116
  3. MERCAPTOPURINE. [Suspect]
     Active Substance: MERCAPTOPURINE
     Dosage: 64 MG MC2D8?23, UNK
     Route: 048
     Dates: start: 20201116
  4. METHOTREXATE SODIUM. [Suspect]
     Active Substance: METHOTREXATE SODIUM
     Indication: ACUTE LYMPHOCYTIC LEUKAEMIA
     Dosage: 17.5 MG MC2D8, 15, 22, UNKNOWN
     Route: 048
     Dates: start: 20201013, end: 20201103
  5. METHOTREXATE. [Suspect]
     Active Substance: METHOTREXATE
     Indication: ACUTE LYMPHOCYTIC LEUKAEMIA
     Dosage: 15 MG MC2D1, UNKNOWN
     Route: 037
     Dates: start: 20201006
  6. MERCAPTOPURINE. [Suspect]
     Active Substance: MERCAPTOPURINE
     Indication: ACUTE LYMPHOCYTIC LEUKAEMIA
     Dosage: 64 MG MC2D8?23, UNK
     Route: 048
     Dates: start: 20201013, end: 20201028
  7. INCB018424 [Suspect]
     Active Substance: RUXOLITINIB
     Indication: ACUTE LYMPHOCYTIC LEUKAEMIA
     Dosage: 85 MG (MC2D8?14), BID
     Route: 048
     Dates: start: 20201013, end: 20201103
  8. INCB018424 [Suspect]
     Active Substance: RUXOLITINIB
     Dosage: 85 MG (MC2D8?14), BID
     Route: 048
     Dates: start: 20201208
  9. VINCRISTINE [Suspect]
     Active Substance: VINCRISTINE
     Indication: ACUTE LYMPHOCYTIC LEUKAEMIA
     Dosage: 2 MG MC2D1, UNKNOWN
     Route: 042
     Dates: start: 20201006, end: 20201103
  10. PREDNISONE. [Suspect]
     Active Substance: PREDNISONE
     Indication: ACUTE LYMPHOCYTIC LEUKAEMIA
     Dosage: 35 MG MC2D1?5, BID
     Route: 048
     Dates: start: 20201006, end: 20201103
  11. PREDNISONE. [Suspect]
     Active Substance: PREDNISONE
     Dosage: 35 MG MC2D1?5, BID
     Route: 048
     Dates: start: 20201109

REACTIONS (1)
  - Herpes zoster [Recovered/Resolved]

NARRATIVE: CASE EVENT DATE: 20201028
